FAERS Safety Report 10905265 (Version 1)
Quarter: 2015Q1

REPORT INFORMATION
  Report Type: Spontaneous
  Country: US (occurrence: None)
  Receive Date: 20150309
  Receipt Date: 20150309
  Transmission Date: 20150721
  Serious: No
  Sender: FDA-Public Use
  Company Number: None

PATIENT
  Age: 36 Year
  Sex: Female
  Weight: 79.38 kg

DRUGS (1)
  1. ACETAMINOPHEN. [Suspect]
     Active Substance: ACETAMINOPHEN
     Indication: PYREXIA
     Dosage: 2 TABLETS
     Route: 048
     Dates: start: 20150308, end: 20150308

REACTIONS (5)
  - Pruritus [None]
  - Rash [None]
  - Rash erythematous [None]
  - No reaction on previous exposure to drug [None]
  - Rash macular [None]

NARRATIVE: CASE EVENT DATE: 20150308
